FAERS Safety Report 4907004-0 (Version None)
Quarter: 2006Q1

REPORT INFORMATION
  Report Type: 
  Country: None (occurrence: None)
  Receive Date: 20060208
  Receipt Date: 20060123
  Transmission Date: 20060701
  Serious: Yes (Death, Hospitalization)
  Sender: FDA-Public Use
  Company Number: COT_0380_2006

PATIENT
  Age: 55 Year
  Sex: Male
  Weight: 176 kg

DRUGS (13)
  1. VENTAVIS [Suspect]
     Indication: PULMONARY HYPERTENSION
     Dosage: 5 MCG VARIABLE IH
     Route: 055
     Dates: start: 20050817
  2. SPIRIVA [Concomitant]
  3. K-DUR 10 [Concomitant]
  4. OXYGEN [Concomitant]
  5. AMARYL [Concomitant]
  6. SYNTHROID [Concomitant]
  7. BUMEX [Concomitant]
  8. ZOCOR [Concomitant]
  9. COMBIVENT [Concomitant]
  10. ADVAIR DISKUS 100/50 [Concomitant]
  11. ALLOPURINOL [Concomitant]
  12. INDOMETHACIN [Concomitant]
  13. PERCOCET [Concomitant]

REACTIONS (4)
  - CONDITION AGGRAVATED [None]
  - FLUID OVERLOAD [None]
  - MYOCARDIAL INFARCTION [None]
  - OEDEMA PERIPHERAL [None]
